FAERS Safety Report 5154135-9 (Version None)
Quarter: 2006Q4

REPORT INFORMATION
  Report Type: 
  Country: None (occurrence: None)
  Receive Date: 20061116
  Receipt Date: 20061116
  Transmission Date: 20070319
  Serious: Yes (Death)
  Sender: FDA-Public Use
  Company Number: None

PATIENT
  Age: 6 Week
  Sex: Female

DRUGS (3)
  1. ZIDOVUDINE [Suspect]
     Dosage: 65 MILLIGRAMS BY MOUTH TWICE DAILY
     Route: 048
     Dates: start: 20061103, end: 20061106
  2. LAMIVUDINE [Suspect]
     Dosage: 18 MILLIGRAMS BY MOUTH TWICE DAILY
     Route: 048
     Dates: start: 20061103, end: 20061106
  3. LOPINAVIR/RITONAVIR [Suspect]
     Dosage: 1 MILLILITER BY MOUTH TWICE DAILY
     Route: 048
     Dates: start: 20061103, end: 20061106

REACTIONS (3)
  - PYREXIA [None]
  - RHINORRHOEA [None]
  - SALIVARY HYPERSECRETION [None]
